FAERS Safety Report 6926492-1 (Version None)
Quarter: 2010Q3

REPORT INFORMATION
  Report Type: 
  Country: None (occurrence: None)
  Receive Date: 20100816
  Receipt Date: 20100811
  Transmission Date: 20110219
  Serious: Yes (Other)
  Sender: FDA-Public Use
  Company Number: JP-MERCK-1008USA00055

PATIENT
  Age: 62 Year
  Sex: Male
  Weight: 63 kg

DRUGS (8)
  1. PEPCID [Suspect]
     Indication: PROPHYLAXIS
     Route: 042
     Dates: start: 20100329, end: 20100329
  2. UNASYN [Concomitant]
     Route: 065
     Dates: start: 20100329, end: 20100329
  3. DIPRIVAN [Concomitant]
     Route: 065
     Dates: start: 20100329, end: 20100329
  4. NITROUS OXIDE [Concomitant]
     Route: 065
  5. ATROPINE SULFATE [Concomitant]
     Route: 065
     Dates: start: 20100329, end: 20100329
  6. MUSCULAX [Concomitant]
     Route: 065
     Dates: start: 20100329, end: 20100329
  7. MIDAZOLAM HCL [Concomitant]
     Route: 065
  8. LACTEC [Concomitant]
     Route: 065

REACTIONS (1)
  - RHABDOMYOLYSIS [None]
